FAERS Safety Report 6326112-3 (Version None)
Quarter: 2009Q3

REPORT INFORMATION
  Report Type: 
  Country: None (occurrence: None)
  Receive Date: 20090824
  Receipt Date: 20090812
  Transmission Date: 20100115
  Serious: Yes (Hospitalization)
  Sender: FDA-Public Use
  Company Number: PHHY2009GB33154

PATIENT
  Sex: Male

DRUGS (5)
  1. EXJADE [Suspect]
     Indication: IRON OVERLOAD
     Dosage: 250 MG/DAY
     Route: 048
     Dates: start: 20090725
  2. EXJADE [Suspect]
     Dosage: 750 MG DAILY
  3. ANTIBIOTICS [Concomitant]
     Indication: ABSCESS
     Dosage: UNK
     Dates: start: 20060101
  4. ANTIBIOTICS [Concomitant]
     Route: 042
  5. ANTIBIOTICS [Concomitant]
     Dosage: UNK
     Route: 048

REACTIONS (5)
  - ABDOMINAL DISCOMFORT [None]
  - ABDOMINAL PAIN [None]
  - HEADACHE [None]
  - SOMNOLENCE [None]
  - TONSILLITIS [None]
